FAERS Safety Report 9171902 (Version 1)
Quarter: 2013Q1

REPORT INFORMATION
  Report Type: Spontaneous
  Country: US (occurrence: US)
  Receive Date: 20130319
  Receipt Date: 20130319
  Transmission Date: 20140127
  Serious: Yes (Death)
  Sender: FDA-Public Use
  Company Number: US-WATSON-2013-04107

PATIENT
  Sex: Male

DRUGS (3)
  1. PROPOXYPHENE HYDROCHLORIDE/ACETAMINOPHEN 65/650 (WATSON LABORATORIES) [Suspect]
     Indication: PAIN MANAGEMENT
     Dosage: UNK, UNKNOWN
     Route: 048
     Dates: start: 198901, end: 200111
  2. DARVOCET                           /00220901/ [Suspect]
     Indication: PAIN MANAGEMENT
     Dosage: UNK, UNKNOWN
     Route: 048
     Dates: start: 198901, end: 200111
  3. DARVON                             /00018802/ [Suspect]
     Indication: PAIN MANAGEMENT
     Dosage: UNK, UNKNOWN
     Route: 048
     Dates: start: 198901, end: 200111

REACTIONS (1)
  - Cardiac disorder [Fatal]
